FAERS Safety Report 4579236-5 (Version None)
Quarter: 2005Q1

REPORT INFORMATION
  Report Type: 
  Country: None (occurrence: None)
  Receive Date: 20050209
  Receipt Date: 20050209
  Transmission Date: 20050727
  Serious: No
  Sender: FDA-Public Use
  Company Number: None

PATIENT
  Sex: Male

DRUGS (1)
  1. DARVOCET-N 100 [Suspect]
     Indication: OSTEOARTHRITIS
     Dosage: 100/650 QID

REACTIONS (1)
  - DRUG INEFFECTIVE [None]
